FAERS Safety Report 7361982-1 (Version None)
Quarter: 2011Q1

REPORT INFORMATION
  Report Type: 
  Country: None (occurrence: None)
  Receive Date: 20110315
  Receipt Date: 20110315
  Transmission Date: 20110831
  Serious: Yes (Life-Threatening, Hospitalization)
  Sender: FDA-Public Use
  Company Number: None

PATIENT
  Age: 72 Year
  Sex: Female
  Weight: 99.7913 kg

DRUGS (1)
  1. METOCLOPRAMIDE [Suspect]
     Indication: GASTROOESOPHAGEAL REFLUX DISEASE
     Dosage: 3X DAILY BEFORE MEALS (2006 OR EARLIER - 2008 - ?)

REACTIONS (3)
  - TRANSIENT ISCHAEMIC ATTACK [None]
  - HYDROCEPHALUS [None]
  - PARKINSON'S DISEASE [None]
